FAERS Safety Report 21643571 (Version 1)
Quarter: 2022Q4

REPORT INFORMATION
  Report Type: Spontaneous
  Country: US (occurrence: US)
  Receive Date: 20221125
  Receipt Date: 20221125
  Transmission Date: 20230112
  Serious: No
  Sender: FDA-Public Use
  Company Number: US-SA-SAC20221124000126

PATIENT
  Sex: Female

DRUGS (17)
  1. DUPIXENT [Suspect]
     Active Substance: DUPILUMAB
     Indication: Dermatitis atopic
     Dosage: 300 MG, QOW
     Route: 058
  2. ATORVASTATIN [Concomitant]
     Active Substance: ATORVASTATIN
  3. RIZATRIPTAN [Concomitant]
     Active Substance: RIZATRIPTAN
  4. BACLOFEN [Concomitant]
     Active Substance: BACLOFEN
  5. CYMBALTA [Concomitant]
     Active Substance: DULOXETINE HYDROCHLORIDE
  6. MOMETASONE FUROATE [Concomitant]
     Active Substance: MOMETASONE FUROATE
  7. FUROSEMIDE [Concomitant]
     Active Substance: FUROSEMIDE
  8. LAMICTAL [Concomitant]
     Active Substance: LAMOTRIGINE
  9. LOSARTAN [Concomitant]
     Active Substance: LOSARTAN
  10. LYRICA [Concomitant]
     Active Substance: PREGABALIN
  11. MIRTAZAPINE [Concomitant]
     Active Substance: MIRTAZAPINE
  12. OMEPRAZOLE [Concomitant]
     Active Substance: OMEPRAZOLE
  13. OXYCODONE [Concomitant]
     Active Substance: OXYCODONE
  14. POTASSIUM [Concomitant]
     Active Substance: POTASSIUM
     Dosage: CH SOL 10MEQ/10
  15. SIMVASTATIN [Concomitant]
     Active Substance: SIMVASTATIN
  16. SYMBICORT [Concomitant]
     Active Substance: BUDESONIDE\FORMOTEROL FUMARATE DIHYDRATE
     Dosage: AER 160-4.5MCG
  17. VITAMIN D NOS [Concomitant]
     Active Substance: VITAMIN D NOS

REACTIONS (2)
  - Back disorder [Unknown]
  - Depression [Unknown]
